FAERS Safety Report 5121864-2 (Version None)
Quarter: 2006Q4

REPORT INFORMATION
  Report Type: 
  Country: None (occurrence: None)
  Receive Date: 20061003
  Receipt Date: 20060908
  Transmission Date: 20070319
  Serious: Yes (Other)
  Sender: FDA-Public Use
  Company Number: 001#1#2006-00383

PATIENT
  Age: 81 Year
  Sex: Male

DRUGS (2)
  1. ALPROSTADIL [Suspect]
     Indication: ARTERIAL OCCLUSIVE DISEASE
     Dosage: 60 MCG, INTRAVENOUS DRIP
     Route: 041
     Dates: start: 20060907, end: 20060908
  2. ALPROSTADIL [Suspect]
     Indication: FEMORAL ARTERY OCCLUSION
     Dosage: 60 MCG, INTRAVENOUS DRIP
     Route: 041
     Dates: start: 20060907, end: 20060908

REACTIONS (3)
  - BLOOD CULTURE POSITIVE [None]
  - CHILLS [None]
  - ENTEROBACTER INFECTION [None]
